FAERS Safety Report 5815156-3 (Version None)
Quarter: 2008Q3

REPORT INFORMATION
  Report Type: 
  Country: None (occurrence: None)
  Receive Date: 20080718
  Receipt Date: 20080715
  Transmission Date: 20090109
  Serious: Yes (Death, Hospitalization, Disabling)
  Sender: FDA-Public Use
  Company Number: US-WYE-H03726108

PATIENT
  Sex: Female
  Weight: 43 kg

DRUGS (20)
  1. TYGACIL [Suspect]
     Indication: SEPSIS
     Dosage: 100 MG LOADING DOSE, THEN 50 MG DAILY
     Route: 041
     Dates: start: 20080219, end: 20080225
  2. TYGACIL [Suspect]
     Indication: PNEUMONIA
  3. LEVOFLOXACIN [Concomitant]
     Indication: RESPIRATORY TRACT INFECTION
     Dosage: UNKNOWN
     Route: 065
     Dates: end: 20080219
  4. AMLODIPINE [Concomitant]
     Route: 065
  5. CARVEDILOL [Concomitant]
     Route: 065
  6. DOXAZOSIN MESYLATE [Concomitant]
     Route: 065
  7. OXYCODONE HCL [Concomitant]
  8. BUSPIRONE HCL [Concomitant]
     Route: 065
  9. TRAZODONE HCL [Concomitant]
     Dosage: 100 MG QHS
     Route: 065
  10. CALCIUM CARBONATE/ERGOCALCIFEROL/RETINOL [Concomitant]
     Route: 065
  11. TEMAZEPAM [Concomitant]
  12. LOMOTIL [Concomitant]
     Dosage: AS NEEDED
     Route: 065
  13. HYDRALAZINE HCL [Concomitant]
     Dosage: AS NEEDED
     Route: 065
  14. ONDANSETRON [Concomitant]
     Dosage: AS NEEDED
     Route: 065
  15. EPOETIN ALFA [Concomitant]
     Dosage: AS NEEDED
     Route: 065
  16. LABETALOL HCL [Concomitant]
     Dosage: AS NEEDED
     Route: 065
  17. MEDROL [Concomitant]
     Route: 065
  18. PROTONIX [Concomitant]
     Route: 042
  19. GUAIFENESIN [Concomitant]
     Route: 065
  20. TAMIFLU [Suspect]
     Indication: INFLUENZA
     Route: 048
     Dates: start: 20080220, end: 20080224

REACTIONS (7)
  - CARDIO-RESPIRATORY ARREST [None]
  - DISEASE PROGRESSION [None]
  - DISSEMINATED INTRAVASCULAR COAGULATION [None]
  - DRUG INEFFECTIVE [None]
  - ENCEPHALOPATHY [None]
  - PANCREATITIS [None]
  - RESPIRATORY FAILURE [None]
